FAERS Safety Report 20837223 (Version 1)
Quarter: 2022Q2

REPORT INFORMATION
  Report Type: Other
  Country: None (occurrence: US)
  Receive Date: 20220517
  Receipt Date: 20220517
  Transmission Date: 20220720
  Serious: Yes (Hospitalization)
  Sender: FDA-Public Use
  Company Number: US-P+L Developments of Newyork Corporation-2128844

PATIENT
  Weight: 90.1 kg

DRUGS (5)
  1. LORATADINE [Suspect]
     Active Substance: LORATADINE
     Indication: Product used for unknown indication
     Route: 065
  2. GUANFACINE [Suspect]
     Active Substance: GUANFACINE
     Route: 065
  3. MELATONIN [Suspect]
     Active Substance: MELATONIN
     Route: 065
  4. CITALOPRAM [Concomitant]
     Active Substance: CITALOPRAM HYDROBROMIDE
     Route: 065
  5. BUPROPION [Concomitant]
     Active Substance: BUPROPION
     Route: 065

REACTIONS (1)
  - Intentional overdose [Unknown]
